FAERS Safety Report 13047467 (Version 1)
Quarter: 2016Q4

REPORT INFORMATION
  Report Type: Spontaneous
  Country: FR (occurrence: FR)
  Receive Date: 20161220
  Receipt Date: 20161220
  Transmission Date: 20170207
  Serious: Yes (Life-Threatening)
  Sender: FDA-Public Use
  Company Number: FR-GUERBET LLC-1061056

PATIENT
  Age: 80 Year
  Sex: Male

DRUGS (9)
  1. ONDANSETRON [Concomitant]
     Active Substance: ONDANSETRON
     Route: 042
     Dates: start: 20161012, end: 20161012
  2. CURASPON [Concomitant]
     Route: 013
     Dates: start: 20161012, end: 20161012
  3. FLUMAZENIL. [Concomitant]
     Active Substance: FLUMAZENIL
  4. LIPIODOL [Suspect]
     Active Substance: ETHIODIZED OIL
     Indication: THERAPEUTIC EMBOLISATION
     Route: 013
     Dates: start: 20161012
  5. DOXORUBICIN HYDROCHLORIDE. [Concomitant]
     Active Substance: DOXORUBICIN HYDROCHLORIDE
     Route: 013
     Dates: start: 20161012, end: 20161012
  6. ACUPAN [Concomitant]
     Active Substance: NEFOPAM HYDROCHLORIDE
     Route: 042
     Dates: start: 20161012, end: 20161012
  7. LACTULOSE. [Concomitant]
     Active Substance: LACTULOSE
  8. OXAZEPAM. [Suspect]
     Active Substance: OXAZEPAM
     Route: 048
     Dates: start: 20161013
  9. VISIPAQUE [Concomitant]
     Active Substance: IODIXANOL
     Route: 013
     Dates: start: 20161012, end: 20161012

REACTIONS (2)
  - Lung disorder [Recovering/Resolving]
  - Acute respiratory distress syndrome [Recovered/Resolved]

NARRATIVE: CASE EVENT DATE: 20161015
